FAERS Safety Report 7722532-0 (Version None)
Quarter: 2011Q3

REPORT INFORMATION
  Report Type: 
  Country: None (occurrence: None)
  Receive Date: 20110831
  Receipt Date: 20110830
  Transmission Date: 20111222
  Serious: Yes (Death)
  Sender: FDA-Public Use
  Company Number: PHHY2011KR76894

PATIENT
  Sex: Male
  Weight: 62.5 kg

DRUGS (3)
  1. NEUPOGEN [Concomitant]
     Dosage: UNK UKN, UNK
  2. TRANSFUSIONS [Concomitant]
     Dosage: UNK UKN, UNK
     Dates: start: 20110811
  3. EXJADE [Suspect]
     Indication: MYELODYSPLASTIC SYNDROME
     Dosage: 1500 MG
     Route: 048
     Dates: start: 20101011, end: 20110811

REACTIONS (2)
  - FATIGUE [None]
  - DEATH [None]
